FAERS Safety Report 10813464 (Version 1)
Quarter: 2015Q1

REPORT INFORMATION
  Report Type: Spontaneous
  Country: GB (occurrence: GB)
  Receive Date: 20150218
  Receipt Date: 20150218
  Transmission Date: 20150721
  Serious: Yes (Other)
  Sender: FDA-Public Use
  Company Number: GB-TEVA-539415ISR

PATIENT
  Age: 55 Year
  Sex: Female
  Weight: 56.8 kg

DRUGS (7)
  1. KETOCONAZOLE. [Concomitant]
     Active Substance: KETOCONAZOLE
     Dates: start: 20141205, end: 20150102
  2. SALBUTAMOL [Concomitant]
     Active Substance: ALBUTEROL
     Dates: start: 20141231, end: 20150128
  3. RAMIPRIL. [Suspect]
     Active Substance: RAMIPRIL
     Dates: start: 20150128
  4. RAMIPRIL. [Suspect]
     Active Substance: RAMIPRIL
     Dates: start: 20141121, end: 20150116
  5. FLUOXETINE [Concomitant]
     Active Substance: FLUOXETINE\FLUOXETINE HYDROCHLORIDE
     Dates: start: 20141121, end: 20150116
  6. ARIPIPRAZOLE. [Concomitant]
     Active Substance: ARIPIPRAZOLE
     Dates: start: 20141121, end: 20150116
  7. CARBOMER 980 [Concomitant]
     Active Substance: CARBOMER HOMOPOLYMER TYPE C (ALLYL PENTAERYTHRITOL CROSSLINKED)
     Dates: start: 20141121, end: 20141219

REACTIONS (3)
  - Alopecia [Unknown]
  - Peripheral swelling [Recovering/Resolving]
  - Diarrhoea [Recovering/Resolving]

NARRATIVE: CASE EVENT DATE: 20150128
